FAERS Safety Report 7177288-X (Version None)
Quarter: 2010Q4

REPORT INFORMATION
  Report Type: 
  Country: None (occurrence: None)
  Receive Date: 20101220
  Receipt Date: 20101206
  Transmission Date: 20110411
  Serious: Yes (Hospitalization)
  Sender: FDA-Public Use
  Company Number: US-ELI_LILLY_AND_COMPANY-US201012001337

PATIENT
  Sex: Female

DRUGS (5)
  1. FORTEO [Suspect]
     Indication: OSTEOPOROSIS
     Dosage: 20 UG, DAILY (1/D)
     Route: 065
     Dates: start: 20101105
  2. CLARITIN [Concomitant]
     Dosage: UNK, DAILY (1/D)
  3. FISH OIL [Concomitant]
     Dosage: UNK, DAILY (1/D)
  4. GLUCOSINE [Concomitant]
     Dosage: UNK, DAILY (1/D)
  5. LIPITOR [Concomitant]

REACTIONS (7)
  - HEPATIC ENZYME ABNORMAL [None]
  - JAW DISORDER [None]
  - MASS [None]
  - SALIVARY GLAND ENLARGEMENT [None]
  - SALIVARY GLAND PAIN [None]
  - SIALOADENITIS [None]
  - WHITE BLOOD CELL COUNT INCREASED [None]
